FAERS Safety Report 7955245-0 (Version None)
Quarter: 2011Q4

REPORT INFORMATION
  Report Type: 
  Country: None (occurrence: None)
  Receive Date: 20111202
  Receipt Date: 20111121
  Transmission Date: 20120403
  Serious: Yes (Hospitalization)
  Sender: FDA-Public Use
  Company Number: US-CELGENEUS-163-21660-11113102

PATIENT
  Age: 64 Year
  Sex: Female

DRUGS (8)
  1. DOXORUBICIN HCL [Suspect]
     Indication: BREAST CANCER
     Dosage: 60 MILLIGRAM/SQ. METER
     Route: 041
     Dates: start: 20110303, end: 20110419
  2. PRBC [Concomitant]
     Dosage: 2 UNITS
     Route: 041
     Dates: start: 20110701
  3. HYDRATION [Concomitant]
     Dosage: 2 UNITS
     Route: 041
     Dates: start: 20110701
  4. NYSTATIN [Concomitant]
     Route: 048
     Dates: start: 20110701
  5. BEVACIZUMAB/PLACEBO [Suspect]
     Indication: BREAST CANCER
     Route: 041
     Dates: start: 20110303, end: 20110614
  6. ABRAXANE [Suspect]
     Indication: BREAST CANCER
     Dosage: 186 MILLIGRAM
     Route: 041
     Dates: start: 20110628
  7. CYCLOPHOSPHAMIDE [Suspect]
     Indication: BREAST CANCER
     Dosage: 600 MILLIGRAM/SQ. METER
     Route: 041
     Dates: start: 20110303, end: 20110419
  8. NEULASTA [Suspect]
     Indication: BREAST CANCER
     Dosage: 6 MILLIGRAM
     Route: 058
     Dates: start: 20110303, end: 20110420

REACTIONS (8)
  - DIARRHOEA [None]
  - WEIGHT DECREASED [None]
  - ORAL CANDIDIASIS [None]
  - HAEMOGLOBIN DECREASED [None]
  - NEUTROPENIA [None]
  - HYPOTENSION [None]
  - DEHYDRATION [None]
  - RENAL FAILURE ACUTE [None]
